FAERS Safety Report 14517730 (Version 1)
Quarter: 2018Q1

REPORT INFORMATION
  Report Type: Spontaneous
  Country: US (occurrence: US)
  Receive Date: 20180209
  Receipt Date: 20180209
  Transmission Date: 20180509
  Serious: Yes (Hospitalization)
  Sender: FDA-Public Use
  Company Number: None

PATIENT
  Sex: Female

DRUGS (1)
  1. OCTREOTIDE 1 ML NORTAVIS [Suspect]
     Active Substance: OCTREOTIDE
     Indication: PANCREATITIS CHRONIC
     Dosage: .5ML(50MCG) DAILY SUBCUTANEOUSLY
     Route: 058
     Dates: start: 20171222

REACTIONS (3)
  - Diarrhoea [None]
  - Dehydration [None]
  - Therapy cessation [None]
